FAERS Safety Report 7230753-9 (Version None)
Quarter: 2011Q1

REPORT INFORMATION
  Report Type: 
  Country: None (occurrence: None)
  Receive Date: 20110105
  Receipt Date: 20101224
  Transmission Date: 20110831
  Serious: Yes (Other)
  Sender: FDA-Public Use
  Company Number: 2010-4455

PATIENT

DRUGS (2)
  1. DYSPORT [Suspect]
  2. DYSPORT [Suspect]
     Indication: SKIN COSMETIC PROCEDURE
     Dosage: 167 UNITS (167 UNITS, SINGLE CYCLE), SUBCUANEOUS
     Route: 058

REACTIONS (2)
  - DRUG HYPERSENSITIVITY [None]
  - WRONG TECHNIQUE IN DRUG USAGE PROCESS [None]
